FAERS Safety Report 9762809 (Version 4)
Quarter: 2014Q2

REPORT INFORMATION
  Report Type: Spontaneous
  Country: US (occurrence: US)
  Receive Date: 20131216
  Receipt Date: 20140415
  Transmission Date: 20141212
  Serious: Yes (Hospitalization)
  Sender: FDA-Public Use
  Company Number: US-GILEAD-2013-0090057

PATIENT
  Age: 84 Year
  Sex: Female

DRUGS (12)
  1. LETAIRIS [Suspect]
     Indication: PULMONARY HYPERTENSION
     Dosage: 5 MG, QD
     Route: 065
     Dates: start: 20090611
  2. LETAIRIS [Suspect]
     Indication: SLEEP APNOEA SYNDROME
  3. COUMADIN                           /00014802/ [Concomitant]
  4. LEVOTHYROXINE [Concomitant]
  5. MAGNESIUM [Concomitant]
  6. DIOVAN [Concomitant]
  7. SIMVASTATIN [Concomitant]
  8. DETROL [Concomitant]
  9. FUROSEMIDE [Concomitant]
  10. PHENTERMINE [Concomitant]
  11. BABY ASPIRIN [Concomitant]
  12. REVATIO [Concomitant]

REACTIONS (10)
  - Abasia [Not Recovered/Not Resolved]
  - Blood glucose decreased [Not Recovered/Not Resolved]
  - Hypertension [Not Recovered/Not Resolved]
  - Heart rate decreased [Not Recovered/Not Resolved]
  - Hypocoagulable state [Not Recovered/Not Resolved]
  - Azotaemia [Not Recovered/Not Resolved]
  - Pain in extremity [Unknown]
  - General physical health deterioration [Not Recovered/Not Resolved]
  - Pain [Not Recovered/Not Resolved]
  - Fluid retention [Not Recovered/Not Resolved]
